FAERS Safety Report 4464687-X (Version None)
Quarter: 2004Q3

REPORT INFORMATION
  Report Type: 
  Country: None (occurrence: None)
  Receive Date: 20040929
  Receipt Date: 20040910
  Transmission Date: 20050211
  Serious: Yes (Other)
  Sender: FDA-Public Use
  Company Number: USA040978180

PATIENT
  Age: 60 Year
  Sex: Female
  Weight: 27 kg

DRUGS (5)
  1. FORTEO [Suspect]
     Indication: OSTEOPOROSIS
     Dosage: 20 UG/1 DAY
     Dates: start: 20040401
  2. NEXIUM [Concomitant]
  3. LEVOXYL [Concomitant]
  4. CALCIUM [Concomitant]
  5. ATIVAN [Concomitant]

REACTIONS (2)
  - METABOLIC ACIDOSIS [None]
  - PAIN [None]
